FAERS Safety Report 20168300 (Version 1)
Quarter: 2021Q4

REPORT INFORMATION
  Report Type: Spontaneous
  Country: GB (occurrence: GB)
  Receive Date: 20211210
  Receipt Date: 20211210
  Transmission Date: 20220303
  Serious: Yes (Other)
  Sender: FDA-Public Use
  Company Number: None

PATIENT
  Age: 41 Year
  Sex: Female
  Weight: 59 kg

DRUGS (2)
  1. BOTULINUM TOXIN TYPE A [Suspect]
     Active Substance: BOTULINUM TOXIN TYPE A
     Indication: Skin wrinkling
     Dosage: 125 SPEYWOOD UNITS
     Route: 051
     Dates: start: 20211127, end: 20211127
  2. LYMECYCLINE [Concomitant]
     Active Substance: LYMECYCLINE
     Indication: Ill-defined disorder

REACTIONS (2)
  - Dizziness [Not Recovered/Not Resolved]
  - Balance disorder [Not Recovered/Not Resolved]

NARRATIVE: CASE EVENT DATE: 20211129
